FAERS Safety Report 12562873 (Version 1)
Quarter: 2016Q3

REPORT INFORMATION
  Report Type: Spontaneous
  Country: CH (occurrence: CH)
  Receive Date: 20160715
  Receipt Date: 20160715
  Transmission Date: 20161109
  Serious: Yes (Other)
  Sender: FDA-Public Use
  Company Number: CH-009507513-1607CHE006160

PATIENT
  Sex: Female

DRUGS (2)
  1. JANUMET [Suspect]
     Active Substance: METFORMIN HYDROCHLORIDE\SITAGLIPTIN PHOSPHATE
     Dosage: UNK DAILY
     Route: 048
     Dates: start: 20160629
  2. JANUMET [Suspect]
     Active Substance: METFORMIN HYDROCHLORIDE\SITAGLIPTIN PHOSPHATE
     Dosage: UNK DAILY
     Route: 048
     Dates: end: 2016

REACTIONS (3)
  - Hepatic pain [Recovered/Resolved]
  - Road traffic accident [Unknown]
  - Liver contusion [Unknown]

NARRATIVE: CASE EVENT DATE: 20160531
